FAERS Safety Report 10260886 (Version 1)
Quarter: 2014Q2

REPORT INFORMATION
  Report Type: Spontaneous
  Country: FR (occurrence: None)
  Receive Date: 20140623
  Receipt Date: 20140623
  Transmission Date: 20141212
  Serious: Yes (Other)
  Sender: FDA-Public Use
  Company Number: CLINIGEN-003418

PATIENT
  Age: 35 Year
  Sex: Female

DRUGS (4)
  1. FOSCAVIR [Suspect]
     Indication: EYE INFECTION BACTERIAL
     Route: 042
     Dates: start: 20140604, end: 20140612
  2. CELLCEPT [Concomitant]
  3. CORTICOSTEROIDS [Concomitant]
  4. ANTIHYPERTENSIVE [Concomitant]

REACTIONS (2)
  - Off label use [None]
  - Renal impairment [None]
